FAERS Safety Report 16752826 (Version 3)
Quarter: 2019Q3

REPORT INFORMATION
  Report Type: Report from Study
  Country: None (occurrence: US)
  Receive Date: 20190829
  Receipt Date: 20190927
  Transmission Date: 20191005
  Serious: Yes (Hospitalization, Other)
  Sender: FDA-Public Use
  Company Number: US-ABBVIE-19K-163-2904749-00

PATIENT
  Age: 68 Year
  Sex: Female
  Weight: 59.02 kg

DRUGS (5)
  1. HUMIRA [Suspect]
     Active Substance: ADALIMUMAB
     Indication: RHEUMATOID ARTHRITIS
     Route: 058
     Dates: end: 2016
  2. HUMIRA [Suspect]
     Active Substance: ADALIMUMAB
     Indication: COLITIS MICROSCOPIC
     Route: 058
     Dates: start: 20170212, end: 2019
  3. NORCO [Concomitant]
     Active Substance: ACETAMINOPHEN\HYDROCODONE BITARTRATE
     Indication: PAIN
  4. HUMIRA [Suspect]
     Active Substance: ADALIMUMAB
     Route: 058
     Dates: start: 201903, end: 20190820
  5. HUMIRA [Suspect]
     Active Substance: ADALIMUMAB
     Route: 058
     Dates: start: 20190916

REACTIONS (9)
  - Colitis microscopic [Recovering/Resolving]
  - Weight decreased [Recovering/Resolving]
  - Meningioma [Recovering/Resolving]
  - Dolichocolon [Recovering/Resolving]
  - Rectal prolapse [Recovering/Resolving]
  - Intestinal mass [Recovering/Resolving]
  - Meningioma [Recovering/Resolving]
  - Paraesthesia [Recovering/Resolving]
  - Abdominal pain [Recovering/Resolving]

NARRATIVE: CASE EVENT DATE: 2010
